FAERS Safety Report 18615087 (Version 2)
Quarter: 2020Q4

REPORT INFORMATION
  Report Type: Spontaneous
  Country: US (occurrence: US)
  Receive Date: 20201215
  Receipt Date: 20201218
  Transmission Date: 20210114
  Serious: Yes (Other)
  Sender: FDA-Public Use
  Company Number: US-UNITED THERAPEUTICS-UNT-2020-016778

PATIENT
  Age: 73 Year
  Sex: Female
  Weight: 77.1 kg

DRUGS (7)
  1. TYVASO [Suspect]
     Active Substance: TREPROSTINIL
     Indication: PULMONARY ARTERIAL HYPERTENSION
     Dosage: 18 ?G
     Dates: start: 20201027
  2. TYVASO [Suspect]
     Active Substance: TREPROSTINIL
     Dosage: 48 ?G
     Dates: start: 2020
  3. TYVASO [Suspect]
     Active Substance: TREPROSTINIL
     Dosage: 36 ?G
     Dates: start: 2020, end: 20201110
  4. TYVASO [Suspect]
     Active Substance: TREPROSTINIL
     Dosage: 42 ?G, QID
     Dates: start: 2020
  5. TYVASO [Suspect]
     Active Substance: TREPROSTINIL
     Dosage: 42 ?G
     Dates: start: 20201110
  6. TYVASO [Suspect]
     Active Substance: TREPROSTINIL
     Dosage: UNK
  7. SILDENAFIL CITRATE. [Concomitant]
     Active Substance: SILDENAFIL CITRATE
     Indication: PRODUCT USED FOR UNKNOWN INDICATION
     Dosage: UNK
     Route: 065

REACTIONS (12)
  - Cough [Recovering/Resolving]
  - Faeces soft [Unknown]
  - Feeling abnormal [Unknown]
  - Fatigue [Unknown]
  - Productive cough [Unknown]
  - Chest discomfort [Recovering/Resolving]
  - Rhinorrhoea [Recovering/Resolving]
  - Mycobacterium avium complex infection [Unknown]
  - Throat irritation [Recovering/Resolving]
  - Urinary tract infection [Unknown]
  - Dry throat [Recovered/Resolved]
  - Blood pressure decreased [Recovering/Resolving]

NARRATIVE: CASE EVENT DATE: 2020
